FAERS Safety Report 21375088 (Version 3)
Quarter: 2022Q4

REPORT INFORMATION
  Report Type: Spontaneous
  Country: US (occurrence: US)
  Receive Date: 20220926
  Receipt Date: 20221017
  Transmission Date: 20230113
  Serious: No
  Sender: FDA-Public Use
  Company Number: US-NESTLEHEALTHSCIENCE-2021000119

PATIENT

DRUGS (6)
  1. ZENPEP [Suspect]
     Active Substance: PANCRELIPASE AMYLASE\PANCRELIPASE LIPASE\PANCRELIPASE PROTEASE
     Indication: Pancreatic failure
     Dosage: CAPSULE, 2X/DAY, STARTED ^AT LEAST 2 YEARS^ AGO
     Route: 048
  2. ZENPEP [Suspect]
     Active Substance: PANCRELIPASE AMYLASE\PANCRELIPASE LIPASE\PANCRELIPASE PROTEASE
     Dosage: CAPSULE, LAST DOSE PRIOR EVENT ONSET
     Route: 048
  3. ZENPEP [Suspect]
     Active Substance: PANCRELIPASE AMYLASE\PANCRELIPASE LIPASE\PANCRELIPASE PROTEASE
     Dosage: UNK, 2X/DAY
     Route: 048
  4. ZOCOR [Concomitant]
     Active Substance: SIMVASTATIN
     Indication: Blood cholesterol
     Dosage: 1 AT NIGHT
  5. VITAMINS NOS [Concomitant]
     Active Substance: VITAMINS
     Indication: Macular degeneration
  6. CHOLECALCIFEROL [Concomitant]
     Active Substance: CHOLECALCIFEROL
     Indication: Prophylaxis

REACTIONS (10)
  - Drug ineffective [Unknown]
  - Pain [Unknown]
  - Illness [Unknown]
  - Asthenia [Unknown]
  - Wrong technique in product usage process [Unknown]
  - Weight decreased [Unknown]
  - Malaise [Unknown]
  - Bed rest [Unknown]
  - Abdominal discomfort [Unknown]
  - Abdominal pain upper [Unknown]

NARRATIVE: CASE EVENT DATE: 20220801
